FAERS Safety Report 7527310-3 (Version None)
Quarter: 2011Q2

REPORT INFORMATION
  Report Type: 
  Country: None (occurrence: None)
  Receive Date: 20110602
  Receipt Date: 20110516
  Transmission Date: 20111010
  Serious: Yes (Life-Threatening, Hospitalization)
  Sender: FDA-Public Use
  Company Number: 20110410

PATIENT
  Age: 44 Year
  Sex: Female

DRUGS (1)
  1. PHENYTOIN SODIUM [Suspect]
     Indication: CONVULSION PROPHYLAXIS
     Dosage: 150 MG EVERY 8 HOURS

REACTIONS (7)
  - RENAL IMPAIRMENT [None]
  - DRUG RASH WITH EOSINOPHILIA AND SYSTEMIC SYMPTOMS [None]
  - JAUNDICE [None]
  - BLOOD LACTATE DEHYDROGENASE INCREASED [None]
  - INTERNATIONAL NORMALISED RATIO INCREASED [None]
  - LABILE BLOOD PRESSURE [None]
  - NORMOCHROMIC NORMOCYTIC ANAEMIA [None]
